FAERS Safety Report 11013293 (Version 2)
Quarter: 2015Q2

REPORT INFORMATION
  Report Type: Spontaneous
  Country: US (occurrence: US)
  Receive Date: 20150411
  Receipt Date: 20150525
  Transmission Date: 20150821
  Serious: No
  Sender: FDA-Public Use
  Company Number: US-JNJFOC-20120520130

PATIENT
  Age: 48 Year
  Sex: Female

DRUGS (6)
  1. MULTIVITAMINS [Concomitant]
     Active Substance: VITAMINS
     Route: 065
  2. ELAVIL [Concomitant]
     Active Substance: AMITRIPTYLINE HYDROCHLORIDE
     Indication: COLITIS ULCERATIVE
     Dosage: START/STOP DATE 1996
     Route: 065
  3. VITAMIN B [Concomitant]
     Active Substance: VITAMIN B
     Route: 065
  4. REMICADE [Suspect]
     Active Substance: INFLIXIMAB
     Indication: COLITIS ULCERATIVE
     Route: 042
     Dates: start: 201103, end: 201105
  5. VITAMIN D [Concomitant]
     Active Substance: CHOLECALCIFEROL
     Route: 065
  6. DIPENTUM [Concomitant]
     Active Substance: OLSALAZINE SODIUM
     Indication: COLITIS ULCERATIVE
     Dosage: START/STOP DATE 1996
     Route: 065

REACTIONS (1)
  - Hypersensitivity [Recovered/Resolved]

NARRATIVE: CASE EVENT DATE: 201105
